FAERS Safety Report 21856486 (Version 2)
Quarter: 2023Q1

REPORT INFORMATION
  Report Type: Report from Study
  Country: US (occurrence: US)
  Receive Date: 20230112
  Receipt Date: 20230123
  Transmission Date: 20230417
  Serious: Yes (Other)
  Sender: FDA-Public Use
  Company Number: US-ABBVIE-4261737

PATIENT
  Age: 64 Year
  Sex: Male
  Weight: 83 kg

DRUGS (4)
  1. RINVOQ [Suspect]
     Active Substance: UPADACITINIB
     Indication: Rheumatoid arthritis
     Route: 048
     Dates: start: 20211022
  2. METHOTREXATE [Concomitant]
     Active Substance: METHOTREXATE
     Indication: Rheumatoid arthritis
  3. CORTISONE [Concomitant]
     Active Substance: CORTISONE
     Indication: Osteoarthritis
  4. CORTISONE [Concomitant]
     Active Substance: CORTISONE
     Indication: Osteoarthritis

REACTIONS (4)
  - Osteoarthritis [Recovering/Resolving]
  - Joint range of motion decreased [Recovered/Resolved]
  - Gait inability [Recovered/Resolved]
  - Injection site pain [Recovered/Resolved]

NARRATIVE: CASE EVENT DATE: 20230101
